FAERS Safety Report 15226694 (Version 1)
Quarter: 2018Q3

REPORT INFORMATION
  Report Type: Spontaneous
  Country: US (occurrence: US)
  Receive Date: 20180801
  Receipt Date: 20180801
  Transmission Date: 20181010
  Serious: No
  Sender: FDA-Public Use
  Company Number: US-SA-2018SA206641

PATIENT
  Sex: Female

DRUGS (19)
  1. RENA?VITE RX [Concomitant]
     Active Substance: ASCORBIC ACID\BIOTIN\CALCIUM PANTOTHENATE\CYANOCOBALAMIN\FOLIC ACID\NIACINAMIDE\PYRIDOXINE HYDROCHLORIDE\RIBOFLAVIN\THIAMINE MONONITRATE
  2. TRIMPEX [TRIMETHOPRIM] [Concomitant]
  3. ULTRAME [Concomitant]
  4. PROTONIX [PANTOPRAZOLE SODIUM SESQUIHYDRATE] [Concomitant]
  5. AUGMENTIN [AMOXICILLIN;CLAVULANIC ACID] [Concomitant]
  6. XALATAN [Concomitant]
     Active Substance: LATANOPROST
  7. PRINIVIL [Concomitant]
     Active Substance: LISINOPRIL
  8. ACTONEL [Concomitant]
     Active Substance: RISEDRONATE SODIUM
  9. INSULIN LISPRO [Concomitant]
     Active Substance: INSULIN LISPRO
  10. PLAVIX [Concomitant]
     Active Substance: CLOPIDOGREL BISULFATE
  11. AUBAGIO [Suspect]
     Active Substance: TERIFLUNOMIDE
  12. ISTALOL [Concomitant]
     Active Substance: TIMOLOL MALEATE
  13. ECOTRIN [Concomitant]
     Active Substance: ASPIRIN
  14. VITAMIN D3 [Concomitant]
     Active Substance: CHOLECALCIFEROL
  15. KENALOG [TRIAMCINOLONE ACETONIDE] [Concomitant]
  16. VITAMIN B6 [Concomitant]
     Active Substance: PYRIDOXINE HYDROCHLORIDE
  17. LIPITOR [Concomitant]
     Active Substance: ATORVASTATIN CALCIUM
  18. LOPRESSOR [Concomitant]
     Active Substance: METOPROLOL TARTRATE
  19. COLACE [Concomitant]
     Active Substance: DOCUSATE SODIUM

REACTIONS (1)
  - Headache [Unknown]
